FAERS Safety Report 6241580-3 (Version None)
Quarter: 2009Q2

REPORT INFORMATION
  Report Type: 
  Country: None (occurrence: None)
  Receive Date: 20090623
  Receipt Date: 20050830
  Transmission Date: 20091009
  Serious: Yes (Hospitalization)
  Sender: FDA-Public Use
  Company Number: MX-ROCHE-374916

PATIENT
  Sex: Female
  Weight: 71 kg

DRUGS (33)
  1. DACLIZUMAB [Suspect]
     Route: 042
     Dates: start: 20040520, end: 20040520
  2. DACLIZUMAB [Suspect]
     Dosage: DOSE RECEIVED ON WEEK 2 VISIT
     Route: 042
     Dates: start: 20040604
  3. DACLIZUMAB [Suspect]
     Dosage: WEEK 4 AND 6
     Route: 042
     Dates: start: 20040616
  4. DACLIZUMAB [Suspect]
     Dosage: WEEK 8
     Route: 042
     Dates: start: 20040715
  5. MYCOPHENOLATE MOFETIL [Suspect]
     Route: 048
     Dates: start: 20040520
  6. MYCOPHENOLATE MOFETIL [Suspect]
     Route: 048
     Dates: start: 20040714
  7. MYCOPHENOLATE MOFETIL [Suspect]
     Route: 048
     Dates: start: 20040820
  8. MYCOPHENOLATE MOFETIL [Suspect]
     Route: 048
     Dates: start: 20041117
  9. MYCOPHENOLATE MOFETIL [Suspect]
     Route: 048
     Dates: start: 20070523
  10. TACROLIMUS [Suspect]
     Route: 048
     Dates: start: 20040520
  11. TACROLIMUS [Suspect]
     Route: 048
     Dates: start: 20040903
  12. TACROLIMUS [Suspect]
     Route: 048
     Dates: start: 20050114
  13. TACROLIMUS [Suspect]
     Route: 048
     Dates: start: 20050422
  14. TACROLIMUS [Suspect]
     Route: 048
     Dates: start: 20050720
  15. TACROLIMUS [Suspect]
     Route: 048
     Dates: start: 20051124
  16. PREDNISONE [Suspect]
     Route: 048
     Dates: start: 20040521
  17. METHYLPREDNISOLONE [Suspect]
     Route: 042
     Dates: start: 20040520
  18. CALCIUM CARBONATE [Concomitant]
     Route: 048
     Dates: start: 20040521
  19. PRAVASTATIN [Concomitant]
     Route: 048
     Dates: start: 20040524
  20. OMEPRAZOLE [Concomitant]
     Route: 048
     Dates: start: 20040623
  21. OMEPRAZOLE [Concomitant]
     Route: 048
     Dates: start: 20040714
  22. OMEPRAZOLE [Concomitant]
     Route: 048
     Dates: start: 20041117
  23. CAPTOPRIL [Concomitant]
     Route: 048
     Dates: start: 20040522, end: 20040524
  24. LOPERAMIDE HYDROCHLORIDE [Concomitant]
     Route: 048
     Dates: start: 20040714, end: 20040723
  25. METOPROLOL SUCCINATE [Concomitant]
     Route: 048
     Dates: start: 20040524, end: 20040811
  26. METOPROLOL SUCCINATE [Concomitant]
     Route: 048
     Dates: start: 20040820, end: 20040901
  27. NIFEDIPINE [Concomitant]
     Route: 048
     Dates: start: 20040522
  28. NIFEDIPINE [Concomitant]
     Route: 048
     Dates: start: 20040524
  29. RANITIDINE [Concomitant]
     Route: 042
     Dates: start: 20040520, end: 20040520
  30. RANITIDINE [Concomitant]
     Route: 048
     Dates: start: 20040521, end: 20040623
  31. SULFAMETHOXAZOLE AND TRIMETHOPRIM [Concomitant]
     Dosage: DRUG: SULFAMETHOXASOLE
     Route: 048
     Dates: start: 20040522, end: 20040820
  32. TRIMETHOPRIM [Concomitant]
     Route: 048
     Dates: start: 20040522
  33. TRIMETHOPRIM [Concomitant]
     Route: 048
     Dates: start: 20040604, end: 20040820

REACTIONS (2)
  - CYTOMEGALOVIRUS INFECTION [None]
  - GASTRIC ULCER [None]
